FAERS Safety Report 24686956 (Version 4)
Quarter: 2025Q1

REPORT INFORMATION
  Report Type: Spontaneous
  Country: US (occurrence: US)
  Receive Date: 20241202
  Receipt Date: 20250214
  Transmission Date: 20250409
  Serious: No
  Sender: ROCHE
  Company Number: US-ROCHE-10000143846

PATIENT
  Age: 34 Year
  Sex: Male
  Weight: 81.65 kg

DRUGS (3)
  1. HEMLIBRA [Suspect]
     Active Substance: EMICIZUMAB-KXWH
     Indication: Factor VIII deficiency
     Dosage: 60 MG/ 0.4ML
     Route: 058
     Dates: start: 202012
  2. HEMLIBRA [Suspect]
     Active Substance: EMICIZUMAB-KXWH
     Dosage: 300 MG/2ML
     Route: 058
     Dates: start: 202012
  3. HEMLIBRA [Suspect]
     Active Substance: EMICIZUMAB-KXWH
     Dosage: ONGOING YES?STRENGTH: 300MG/2ML, 60MG/0.4ML?LATEST SUSPECT DRUG ADMINISTRATION IN RELATION TO ONSET
     Route: 058
     Dates: start: 202304

REACTIONS (2)
  - Haemarthrosis [Recovered/Resolved]
  - Haemorrhage [Recovered/Resolved]

NARRATIVE: CASE EVENT DATE: 20241118
